FAERS Safety Report 19665125 (Version 1)
Quarter: 2021Q3

REPORT INFORMATION
  Report Type: Spontaneous
  Country: US (occurrence: US)
  Receive Date: 20210802
  Receipt Date: 20210802
  Transmission Date: 20211014
  Serious: Yes (Other)
  Sender: FDA-Public Use
  Company Number: None

PATIENT

DRUGS (1)
  1. METFORMIN HCL ER 500MG TABLET [Suspect]
     Active Substance: METFORMIN HYDROCHLORIDE
     Dosage: IN THE MORNING
     Route: 048

REACTIONS (3)
  - Erythema [None]
  - Pain in extremity [None]
  - Blister [None]
